FAERS Safety Report 23753082 (Version 1)
Quarter: 2024Q2

REPORT INFORMATION
  Report Type: Spontaneous
  Country: US (occurrence: US)
  Receive Date: 20240417
  Receipt Date: 20240417
  Transmission Date: 20240717
  Serious: Yes (Hospitalization, Other)
  Sender: FDA-Public Use
  Company Number: US-FMCRTG-FMC-2404-000370

PATIENT
  Age: 73 Year
  Sex: Male
  Weight: 91.5 kg

DRUGS (2)
  1. DELFLEX WITH DEXTROSE 1.5% LOW MAGNESIUM LOW CALCIUM [Suspect]
     Active Substance: CALCIUM CHLORIDE\DEXTROSE\MAGNESIUM CHLORIDE\SODIUM CHLORIDE\SODIUM LACTATE
     Indication: End stage renal disease
     Dosage: 2300 ML FOR 4 CYCLES WITH NO LAST FILL AND NO DAYTIME EXCHANGE
     Route: 033
  2. DELFLEX WITH DEXTROSE 2.5% LOW MAGNESIUM LOW CALCIUM [Suspect]
     Active Substance: CALCIUM CHLORIDE\DEXTROSE\MAGNESIUM CHLORIDE\SODIUM CHLORIDE\SODIUM LACTATE
     Indication: End stage renal disease
     Dosage: 2300 ML FOR 4 CYCLES WITH NO LAST FILL AND NO DAYTIME EXCHANGE
     Route: 033

REACTIONS (3)
  - Haematuria [Recovering/Resolving]
  - Hypertension [Recovering/Resolving]
  - Peritonitis [Recovering/Resolving]

NARRATIVE: CASE EVENT DATE: 20240323
